FAERS Safety Report 6500667-8 (Version None)
Quarter: 2009Q4

REPORT INFORMATION
  Report Type: 
  Country: None (occurrence: None)
  Receive Date: 20091216
  Receipt Date: 20090105
  Transmission Date: 20100525
  Serious: No
  Sender: FDA-Public Use
  Company Number: A0762276A

PATIENT
  Age: 40 Year
  Sex: Female

DRUGS (2)
  1. COMMIT [Suspect]
     Dates: start: 20090102, end: 20090102
  2. COMMIT [Suspect]
     Route: 002
     Dates: start: 20090102, end: 20090102

REACTIONS (2)
  - COUGH [None]
  - OROPHARYNGEAL PAIN [None]
